FAERS Safety Report 9484090 (Version 2)
Quarter: 2013Q3

REPORT INFORMATION
  Report Type: Spontaneous
  Country: CA (occurrence: CA)
  Receive Date: 20130828
  Receipt Date: 20130828
  Transmission Date: 20140515
  Serious: Yes (Other)
  Sender: FDA-Public Use
  Company Number: CA-AMGEN-KDL273813

PATIENT
  Age: 51 Year
  Sex: Male
  Weight: 74.9 kg

DRUGS (4)
  1. ENBREL [Suspect]
     Indication: ANKYLOSING SPONDYLITIS
     Dosage: UNK UNK, QWK
     Route: 065
     Dates: start: 20080104
  2. INDOMETHACIN [Concomitant]
     Dosage: UNK UNK, UNK
  3. MISOPROSTOL [Concomitant]
     Dosage: UNK UNK, UNK
  4. PREDNISONE [Concomitant]
     Dosage: UNK UNK, QID

REACTIONS (6)
  - Retinal detachment [Not Recovered/Not Resolved]
  - Iritis [Not Recovered/Not Resolved]
  - Thermal burn [Unknown]
  - Sneezing [Recovered/Resolved]
  - Rhinorrhoea [Recovered/Resolved]
  - Cough [Recovered/Resolved]
